FAERS Safety Report 26179853 (Version 1)
Quarter: 2025Q4

REPORT INFORMATION
  Report Type: Spontaneous
  Country: CN (occurrence: CN)
  Receive Date: 20251219
  Receipt Date: 20251219
  Transmission Date: 20260118
  Serious: Yes (Disabling)
  Sender: MERCK SHARP & DOHME LLC
  Company Number: CN-009507513-2362567

PATIENT
  Age: 74 Year
  Sex: Male
  Weight: 70 kg

DRUGS (6)
  1. PEMBROLIZUMAB [Suspect]
     Active Substance: PEMBROLIZUMAB
     Indication: Squamous cell carcinoma of lung
     Dosage: TIME INTERVAL: TOTAL
     Route: 041
     Dates: start: 20251121, end: 20251121
  2. CARBOPLATIN [Suspect]
     Active Substance: CARBOPLATIN
     Indication: Squamous cell carcinoma of lung
     Dosage: TIME INTERVAL: TOTAL
     Route: 041
     Dates: start: 20251121, end: 20251121
  3. PACLITAXEL [Suspect]
     Active Substance: PACLITAXEL
     Indication: Squamous cell carcinoma of lung
     Dosage: TIME INTERVAL: TOTAL
     Route: 041
     Dates: start: 20251121, end: 20251121
  4. SODIUM CHLORIDE [Concomitant]
     Active Substance: SODIUM CHLORIDE
     Indication: Vehicle solution use
     Dosage: TIME INTERVAL: TOTAL
     Route: 041
     Dates: start: 20251121, end: 20251121
  5. SODIUM CHLORIDE [Concomitant]
     Active Substance: SODIUM CHLORIDE
     Indication: Vehicle solution use
     Dosage: TIME INTERVAL: TOTAL
     Route: 041
     Dates: start: 20251121, end: 20251121
  6. DEXTROSE [Concomitant]
     Active Substance: DEXTROSE MONOHYDRATE
     Indication: Vehicle solution use
     Dosage: TIME INTERVAL: TOTAL
     Route: 041
     Dates: start: 20251121, end: 20251121

REACTIONS (1)
  - Myelosuppression [Recovering/Resolving]

NARRATIVE: CASE EVENT DATE: 20251127
